FAERS Safety Report 25909423 (Version 1)
Quarter: 2025Q4

REPORT INFORMATION
  Report Type: Other
  Country: US (occurrence: US)
  Receive Date: 20251011
  Receipt Date: 20251011
  Transmission Date: 20260118
  Serious: No
  Sender: ANI
  Company Number: US-ANIPHARMA-030849

PATIENT
  Age: 44 Year
  Sex: Male
  Weight: 79.38 kg

DRUGS (5)
  1. OPIUM TINCTURE [Suspect]
     Active Substance: MORPHINE
     Indication: Short-bowel syndrome
     Dosage: 10 MG/ML
     Route: 048
  2. NEXIUM [Concomitant]
     Active Substance: ESOMEPRAZOLE MAGNESIUM
     Indication: Short-bowel syndrome
  3. VYVANSE [Concomitant]
     Active Substance: LISDEXAMFETAMINE DIMESYLATE
     Indication: Attention deficit hyperactivity disorder
  4. METOPROLOL [Concomitant]
     Active Substance: METOPROLOL
     Indication: Cardiac disorder
  5. TRICAL [Concomitant]
     Indication: Product used for unknown indication

REACTIONS (10)
  - Malaise [Unknown]
  - Lacrimation increased [Unknown]
  - Abdominal pain [Unknown]
  - Tremor [Unknown]
  - Abdominal pain upper [Unknown]
  - Product odour abnormal [Unknown]
  - Hyperhidrosis [Unknown]
  - Yawning [Unknown]
  - Drug ineffective [Unknown]
  - Nausea [Unknown]
